FAERS Safety Report 9036206 (Version 1)
Quarter: 2013Q1

REPORT INFORMATION
  Report Type: Spontaneous
  Country: US (occurrence: None)
  Receive Date: 20130117
  Receipt Date: 20130117
  Transmission Date: 20140127
  Serious: Yes (Other)
  Sender: FDA-Public Use
  Company Number: None

PATIENT
  Age: 54 Year
  Sex: Female
  Weight: 81.19 kg

DRUGS (2)
  1. EPIVIR [Suspect]
     Indication: HIV INFECTION
     Dates: start: 20050101, end: 20121201
  2. LAMIVUDINE [Suspect]
     Indication: HIV INFECTION
     Dates: start: 20121201, end: 20121215

REACTIONS (2)
  - Product substitution issue [None]
  - Nausea [None]
